FAERS Safety Report 14469287 (Version 1)
Quarter: 2018Q1

REPORT INFORMATION
  Report Type: Spontaneous
  Country: US (occurrence: US)
  Receive Date: 20180131
  Receipt Date: 20180131
  Transmission Date: 20180509
  Serious: No
  Sender: FDA-Public Use
  Company Number: US-ACORDA-ACO_140871_2017

PATIENT
  Age: 56 Year
  Sex: Female

DRUGS (2)
  1. AMPYRA [Suspect]
     Active Substance: DALFAMPRIDINE
     Indication: MYELITIS TRANSVERSE
     Dosage: 10 MG, Q 12 HRS
     Route: 048
     Dates: start: 20160126, end: 2017
  2. AMPYRA [Suspect]
     Active Substance: DALFAMPRIDINE
     Indication: NEUROMYELITIS OPTICA SPECTRUM DISORDER
     Dosage: 10 MG, Q 12 HRS
     Route: 048
     Dates: start: 2017

REACTIONS (5)
  - Therapy cessation [Recovered/Resolved]
  - Increased tendency to bruise [Not Recovered/Not Resolved]
  - Product use in unapproved indication [Unknown]
  - Asthenia [Recovered/Resolved]
  - Alopecia [Not Recovered/Not Resolved]

NARRATIVE: CASE EVENT DATE: 2016
